FAERS Safety Report 6216409-X (Version None)
Quarter: 2009Q2

REPORT INFORMATION
  Report Type: 
  Country: None (occurrence: None)
  Receive Date: 20090605
  Receipt Date: 20090529
  Transmission Date: 20091009
  Serious: Yes (Hospitalization)
  Sender: FDA-Public Use
  Company Number: JP-JNJFOC-20090506137

PATIENT
  Sex: Male

DRUGS (8)
  1. CRAVIT [Suspect]
     Indication: UPPER RESPIRATORY TRACT INFLAMMATION
     Route: 048
  2. TAKEPRON [Suspect]
     Indication: NAUSEA
     Route: 048
  3. DIAZEPAM [Concomitant]
     Route: 048
  4. ASPIRIN [Concomitant]
     Route: 048
  5. URINORM [Concomitant]
     Route: 048
  6. BLOPRESS [Concomitant]
     Route: 048
  7. LAC B [Concomitant]
     Route: 048
  8. AZULENE SULFONATE [Concomitant]
     Route: 048

REACTIONS (2)
  - CHROMATURIA [None]
  - HEPATIC FUNCTION ABNORMAL [None]
